FAERS Safety Report 7905737-5 (Version None)
Quarter: 2011Q4

REPORT INFORMATION
  Report Type: 
  Country: None (occurrence: None)
  Receive Date: 20111108
  Receipt Date: 20111031
  Transmission Date: 20120403
  Serious: Yes (Death, Other)
  Sender: FDA-Public Use
  Company Number: 2006JP000518

PATIENT
  Age: 59 Year
  Sex: Male
  Weight: 57 kg

DRUGS (8)
  1. FUNGUARD (MICAFUNGIN) INJECTION [Suspect]
     Indication: ANTIFUNGAL PROPHYLAXIS
     Dosage: IV DRIP
     Route: 041
     Dates: start: 20050101
  2. FUNGUARD (MICAFUNGIN) INJECTION [Suspect]
     Indication: ANTIFUNGAL PROPHYLAXIS
     Dosage: IV DRIP
     Route: 041
     Dates: start: 20040101
  3. PROGRAF [Suspect]
     Indication: ACUTE GRAFT VERSUS HOST DISEASE
     Dates: start: 20050101
  4. FLUDARABINE PHOSPHATE [Concomitant]
  5. ITRACONAZOLE [Concomitant]
  6. METHYLPREDNISOLONE [Suspect]
     Indication: ACUTE GRAFT VERSUS HOST DISEASE
     Dates: start: 20050101
  7. CYCLOSPORINE [Concomitant]
  8. MELPHALAN HYDROCHLORIDE [Concomitant]

REACTIONS (9)
  - GRAFT VERSUS HOST DISEASE IN INTESTINE [None]
  - THROMBOTIC MICROANGIOPATHY [None]
  - GRAFT VERSUS HOST DISEASE IN SKIN [None]
  - PNEUMOCYSTIS JIROVECI PNEUMONIA [None]
  - ZYGOMYCOSIS [None]
  - CORD BLOOD TRANSPLANT THERAPY [None]
  - HAEMOPTYSIS [None]
  - GRAFT VERSUS HOST DISEASE IN LIVER [None]
  - DRUG INEFFECTIVE [None]
